FAERS Safety Report 6100863-8 (Version None)
Quarter: 2009Q1

REPORT INFORMATION
  Report Type: 
  Country: None (occurrence: None)
  Receive Date: 20090304
  Receipt Date: 20090220
  Transmission Date: 20090719
  Serious: Yes (Other)
  Sender: FDA-Public Use
  Company Number: US-WYE-H08323009

PATIENT
  Age: 71 Year
  Sex: Female
  Weight: 108.96 kg

DRUGS (11)
  1. ADVIL [Suspect]
     Indication: BACK PAIN
     Dosage: 2 TABLETS AS NEEDED
     Route: 048
     Dates: start: 20090101, end: 20090201
  2. ACETYLSALICYLIC ACID [Concomitant]
     Dosage: UNKNOWN
     Route: 048
  3. DIGOXIN [Concomitant]
     Dosage: UNKNOWN DOSE, THREE TIMES DAILY
     Route: 048
  4. ADVIL [Suspect]
     Dosage: 2 CAPLETS AS NEEDED
     Route: 048
     Dates: start: 20090201
  5. SYNTHROID [Concomitant]
     Dosage: 1 MG MONDAY THROUGH FRIDAY
     Route: 048
  6. SYNTHROID [Concomitant]
     Dosage: 2 MG SATURDAY AND SUNDAY
     Route: 048
  7. COUMADIN [Concomitant]
     Route: 048
  8. VITAMIN D [Concomitant]
     Dosage: UNKNOWN
     Route: 048
  9. ZANTAC [Concomitant]
     Dosage: 75 MG, FREQUENCY UNKNOWN
     Route: 048
  10. TYLENOL [Suspect]
     Dosage: UNKNOWN
     Route: 048
  11. METOPROLOL SUCCINATE [Concomitant]
     Dosage: 25 MG, UNKNOWN FREQUENCY
     Route: 048

REACTIONS (4)
  - DRUG EFFECT DECREASED [None]
  - EPISTAXIS [None]
  - TRANSIENT ISCHAEMIC ATTACK [None]
  - VAGINAL HAEMORRHAGE [None]
